FAERS Safety Report 11231904 (Version 1)
Quarter: 2015Q2

REPORT INFORMATION
  Report Type: Spontaneous
  Country: US (occurrence: None)
  Receive Date: 20150630
  Receipt Date: 20150630
  Transmission Date: 20150821
  Serious: No
  Sender: FDA-Public Use
  Company Number: None

PATIENT
  Age: 52 Year
  Sex: Female
  Weight: 56.4 kg

DRUGS (1)
  1. MORPHINE 2 MG [Suspect]
     Active Substance: MORPHINE
     Dosage: 2 MG/1-ML SYRINGE, Q4H PRN PAIN, INTRAVENOUS
     Route: 042
     Dates: start: 20150415, end: 20150417

REACTIONS (1)
  - Pruritus [None]

NARRATIVE: CASE EVENT DATE: 20150415
